FAERS Safety Report 4375359-4 (Version None)
Quarter: 2004Q2

REPORT INFORMATION
  Report Type: 
  Country: None (occurrence: None)
  Receive Date: 20040607
  Receipt Date: 20040526
  Transmission Date: 20050107
  Serious: Yes (Death)
  Sender: FDA-Public Use
  Company Number: 163-20785-04050703

PATIENT
  Age: 76 Year
  Sex: Male

DRUGS (1)
  1. THALOMID (THALIDOMIDE) [Suspect]
     Dosage: ORAL
     Route: 048

REACTIONS (13)
  - AMNESIA [None]
  - ANOREXIA [None]
  - ASTHENIA [None]
  - BONE MARROW DISORDER [None]
  - CARCINOMA [None]
  - CARDIAC FAILURE [None]
  - FEELING COLD [None]
  - MALIGNANT NEOPLASM PROGRESSION [None]
  - NAUSEA [None]
  - RENAL FAILURE [None]
  - SLEEP DISORDER [None]
  - TREMOR [None]
  - VISION BLURRED [None]
